FAERS Safety Report 13141032 (Version 1)
Quarter: 2017Q1

REPORT INFORMATION
  Report Type: Spontaneous
  Country: US (occurrence: US)
  Receive Date: 20170120
  Receipt Date: 20170120
  Transmission Date: 20170428
  Serious: Yes (Other)
  Sender: FDA-Public Use
  Company Number: None

PATIENT
  Age: 33 Year
  Sex: Male
  Weight: 81 kg

DRUGS (2)
  1. LEVOFLOXACIN 500 MG [Suspect]
     Active Substance: LEVOFLOXACIN
     Indication: PROSTATITIS
     Dosage: ?          QUANTITY:14 TABLET(S);?
     Route: 048
     Dates: start: 20170109, end: 20170113
  2. NORITRIPLINE [Concomitant]

REACTIONS (4)
  - Tendon disorder [None]
  - Neuropathy peripheral [None]
  - Burning sensation [None]
  - Muscular weakness [None]

NARRATIVE: CASE EVENT DATE: 20170113
